FAERS Safety Report 26203694 (Version 1)
Quarter: 2025Q4

REPORT INFORMATION
  Report Type: Spontaneous
  Country: US (occurrence: US)
  Receive Date: 20251226
  Receipt Date: 20251226
  Transmission Date: 20260118
  Serious: Yes (Life-Threatening, Other)
  Sender: SHIONOGI
  Company Number: US-shionogi-202500014232

PATIENT
  Age: 62 Year
  Sex: Female

DRUGS (4)
  1. CEFIDEROCOL [Suspect]
     Active Substance: CEFIDEROCOL
     Indication: Achromobacter infection
  2. CEFIDEROCOL [Suspect]
     Active Substance: CEFIDEROCOL
     Indication: Bacteraemia
  3. TACROLIMUS [Suspect]
     Active Substance: TACROLIMUS
     Indication: Bacteraemia
     Dosage: LOWER DOSES
  4. TACROLIMUS [Suspect]
     Active Substance: TACROLIMUS
     Indication: Achromobacter infection

REACTIONS (7)
  - Multiple organ dysfunction syndrome [Unknown]
  - Septic shock [Unknown]
  - Bacteraemia [Unknown]
  - Acute kidney injury [Unknown]
  - Respiratory distress [Unknown]
  - COVID-19 pneumonia [Unknown]
  - Respiratory failure [Unknown]
